FAERS Safety Report 21160754 (Version 1)
Quarter: 2022Q3

REPORT INFORMATION
  Report Type: Spontaneous
  Country: US (occurrence: None)
  Receive Date: 20220801
  Receipt Date: 20220801
  Transmission Date: 20221026
  Serious: No
  Sender: FDA-Public Use
  Company Number: None

PATIENT
  Age: 51 Year
  Sex: Male
  Weight: 103 kg

DRUGS (1)
  1. CILGAVIMAB\TIXAGEVIMAB [Suspect]
     Active Substance: CILGAVIMAB\TIXAGEVIMAB
     Dosage: 600 MG ONCE IM
     Route: 030
     Dates: start: 20220721, end: 20220721

REACTIONS (3)
  - Dry eye [None]
  - Eye irritation [None]
  - Lacrimation increased [None]

NARRATIVE: CASE EVENT DATE: 20220722
